FAERS Safety Report 17877904 (Version 4)
Quarter: 2022Q2

REPORT INFORMATION
  Report Type: Report from Study
  Country: CZ (occurrence: CZ)
  Receive Date: 20200609
  Receipt Date: 20220511
  Transmission Date: 20220720
  Serious: Yes (Death, Life-Threatening, Hospitalization, Disabling, Other)
  Sender: FDA-Public Use
  Company Number: CZ-BRISTOL-MYERS SQUIBB COMPANY-BMS-2020-019802

PATIENT
  Age: 72 Year
  Sex: Male
  Weight: 77 kg

DRUGS (36)
  1. IPILIMUMAB [Suspect]
     Active Substance: IPILIMUMAB
     Indication: Renal cell carcinoma
     Dosage: RECEIVED HIS LAST DOSE OF BLINDED IPILIMUMAB/PLACEBO ON 02-JAN-2020
     Route: 042
     Dates: start: 20191031
  2. NITRENDIPINE [Concomitant]
     Active Substance: NITRENDIPINE
     Indication: Product used for unknown indication
     Route: 048
     Dates: start: 2014, end: 20200303
  3. ZOLPIDEM TARTRATE [Concomitant]
     Active Substance: ZOLPIDEM TARTRATE
     Indication: Product used for unknown indication
     Dosage: 5 MILLIGRAM
     Route: 048
     Dates: start: 20191031, end: 20200303
  4. LACTULOSE [Concomitant]
     Active Substance: LACTULOSE
     Indication: Prophylaxis
     Dosage: 1 DF - 15 UNIT NOS
     Route: 048
     Dates: start: 20191114, end: 20200303
  5. BISULEPIN [Concomitant]
     Active Substance: BISULEPIN
     Indication: Product used for unknown indication
     Route: 048
     Dates: start: 20191213, end: 20200303
  6. PERINDOPRIL ERBUMINE [Concomitant]
     Active Substance: PERINDOPRIL ERBUMINE
     Indication: Product used for unknown indication
     Route: 048
     Dates: start: 2014, end: 20200303
  7. TRAZODONE HYDROCHLORIDE [Concomitant]
     Active Substance: TRAZODONE HYDROCHLORIDE
     Indication: Product used for unknown indication
     Dosage: 25 MILLIGRAM
     Route: 048
     Dates: start: 20200109, end: 20200304
  8. NADROPARIN CALCIUM [Concomitant]
     Active Substance: NADROPARIN CALCIUM
     Indication: Prophylaxis
     Dosage: 1 DF=5700 UNITS NOS AND ALSO RECEIVED 9500 ON 05-MAR-2020?19000 UNITS NOS ON 6-MAR-2020 TO 12-MAR-20
     Route: 058
     Dates: start: 20200109, end: 20200305
  9. ATROVENT [Concomitant]
     Active Substance: IPRATROPIUM BROMIDE
     Indication: Product used for unknown indication
     Dosage: 1 DOSAGE FORM=2 UNIT NOS
     Route: 055
     Dates: start: 20200109, end: 20200305
  10. FENTANYL [Concomitant]
     Active Substance: FENTANYL
     Indication: Product used for unknown indication
     Route: 062
     Dates: start: 20191213
  11. FENTANYL [Concomitant]
     Active Substance: FENTANYL
     Dosage: 25 MICROGRAM
     Route: 062
     Dates: start: 20191114
  12. INDAP [Concomitant]
     Indication: Product used for unknown indication
     Route: 048
     Dates: start: 2014, end: 20200303
  13. PANTOPRAZOLE SODIUM [Concomitant]
     Active Substance: PANTOPRAZOLE SODIUM
     Indication: Prophylaxis
     Dosage: 40 MILLIGRAM
     Route: 048
     Dates: start: 20200122, end: 20200305
  14. CEFOTAXIME [Concomitant]
     Active Substance: CEFOTAXIME SODIUM
     Indication: Product used for unknown indication
     Dosage: 6 GRAM
     Route: 042
     Dates: start: 20200304, end: 20200311
  15. ELECTROLYTES NOS [Concomitant]
     Active Substance: ELECTROLYTES NOS
     Indication: Prophylaxis
     Dosage: 1 DF=2000 UNITS NOS ?1 DF=500 UNITS NOS, RECEIVED ON 5-MAR-2020,??PLASMALYTE + 5% GLUCOSE -  RECEIVE
     Route: 042
     Dates: start: 20200304, end: 20200305
  16. HYDROCORTISONE [Concomitant]
     Active Substance: HYDROCORTISONE
     Indication: Product used for unknown indication
     Dosage: 200 MILLIGRAM
     Route: 042
     Dates: start: 20200304, end: 20200305
  17. TIOTROPIUM BROMIDE [Concomitant]
     Active Substance: TIOTROPIUM BROMIDE
     Indication: Product used for unknown indication
     Dosage: 10 MICROGRAM
     Route: 055
     Dates: start: 20191007, end: 20200303
  18. ALLOPURINOL [Concomitant]
     Active Substance: ALLOPURINOL
     Indication: Product used for unknown indication
     Dosage: 100 MILLIGRAM
     Route: 048
     Dates: start: 2017, end: 20200305
  19. ALLOPURINOL [Concomitant]
     Active Substance: ALLOPURINOL
     Route: 048
     Dates: start: 20200110, end: 20200305
  20. EUPHYLLIN CR N [Concomitant]
     Indication: Product used for unknown indication
     Dosage: 400 MILLIGRAM
     Route: 048
     Dates: start: 2014, end: 20200303
  21. BETAMETHASONE DIPROPIONATE\GENTAMICIN SULFATE [Concomitant]
     Active Substance: BETAMETHASONE DIPROPIONATE\GENTAMICIN SULFATE
     Indication: Product used for unknown indication
     Dosage: 0.5 MILLIGRAM
     Route: 061
     Dates: start: 20200102
  22. NEUROL [VALERIANA OFFICINALIS EXTRACT] [Concomitant]
     Indication: Product used for unknown indication
     Dosage: 0.5 MILLIGRAM
     Route: 048
     Dates: start: 20200109, end: 20200303
  23. CLARITHROMYCIN [Concomitant]
     Active Substance: CLARITHROMYCIN
     Indication: Product used for unknown indication
     Dosage: 1 GRAM
     Route: 042
     Dates: start: 20200110
  24. PREDNISONE [Concomitant]
     Active Substance: PREDNISONE
     Indication: Product used for unknown indication
     Dosage: 40 MILLIGRAM
     Route: 048
     Dates: start: 20200305
  25. SOLU-MEDROL [Concomitant]
     Active Substance: METHYLPREDNISOLONE SODIUM SUCCINATE
     Indication: Product used for unknown indication
     Dosage: 140 MILLIGRAM
     Route: 042
     Dates: start: 20200305
  26. FUROSEMIDE [Concomitant]
     Active Substance: FUROSEMIDE
     Indication: Product used for unknown indication
     Dosage: 20 MILLIGRAM
     Route: 042
     Dates: start: 20200305
  27. HUMULIN R [Concomitant]
     Active Substance: INSULIN HUMAN
     Indication: Product used for unknown indication
     Dosage: 1 DOSAGE FORM
     Route: 042
     Dates: start: 20200305, end: 20200312
  28. CIPRALEX [Concomitant]
     Active Substance: ESCITALOPRAM OXALATE
     Indication: Product used for unknown indication
     Dosage: 10 MILLIGRAM
     Route: 048
     Dates: start: 20200309, end: 20200312
  29. PERINDOPRIL [Concomitant]
     Active Substance: PERINDOPRIL
     Indication: Product used for unknown indication
     Dosage: 5 MILLIGRAM
     Route: 048
     Dates: start: 20200310, end: 20200312
  30. AMINO ACIDS\DEXTROSE\ELECTROLYTES NOS [Concomitant]
     Active Substance: AMINO ACIDS\DEXTROSE\ELECTROLYTES NOS
     Indication: Product used for unknown indication
     Dosage: 1 DOSAGE FORM=1 UNIT NOS
     Route: 042
     Dates: start: 20200310, end: 20200312
  31. TRACUTIL [CHROMIC CHLORIDE;COPPER CHLORIDE DIHYDRATE;FERRIC CHLORIDE;M [Concomitant]
     Indication: Product used for unknown indication
     Dosage: 1 DOSAGE FORM= 1 UNIT NOS
     Route: 042
     Dates: start: 20200310, end: 20200312
  32. CERNEVIT [Concomitant]
     Active Substance: VITAMINS
     Indication: Product used for unknown indication
     Dosage: 1 DOSAGE FORM= 1 UNIT NOS
     Route: 042
     Dates: start: 20200310, end: 20200312
  33. PROBIOTICS NOS [Concomitant]
     Active Substance: PROBIOTICS NOS
     Indication: Product used for unknown indication
     Dosage: 1 DOSAGE FORM= 1 UNIT NOS
     Route: 048
     Dates: start: 20200311, end: 20200312
  34. VANCOMYCIN HYDROCHLORIDE [Concomitant]
     Active Substance: VANCOMYCIN HYDROCHLORIDE
     Indication: Product used for unknown indication
     Dosage: 1 GRAM
     Route: 042
     Dates: start: 20200311, end: 20200312
  35. SODIUM CHLORIDE [Concomitant]
     Active Substance: SODIUM CHLORIDE
     Indication: Product used for unknown indication
     Dosage: 1 DOSAGE FORM
     Route: 042
     Dates: start: 20200312, end: 20200313
  36. POTASSIUM [Concomitant]
     Active Substance: POTASSIUM
     Indication: Product used for unknown indication
     Dosage: 2000 MILLIGRAM
     Route: 048
     Dates: start: 20200306, end: 20200309

REACTIONS (2)
  - Respiratory failure [Not Recovered/Not Resolved]
  - Cerebrovascular accident [Fatal]

NARRATIVE: CASE EVENT DATE: 20200304
